FAERS Safety Report 8262686-3 (Version None)
Quarter: 2012Q1

REPORT INFORMATION
  Report Type: 
  Country: None (occurrence: None)
  Receive Date: 20120327
  Receipt Date: 20080609
  Transmission Date: 20120608
  Serious: Yes (Other)
  Sender: FDA-Public Use
  Company Number: PHEH2008US03429

PATIENT
  Age: 5 Year
  Sex: Female
  Weight: 27.1 kg

DRUGS (5)
  1. HYDROXYUREA [Concomitant]
  2. PENTAMIDINE (PENTAMIDINE) [Concomitant]
  3. GLEEVEC [Suspect]
     Indication: CHRONIC MYELOID LEUKAEMIA
     Dosage: 300 MG, QD, ORAL
     Route: 048
     Dates: start: 20080103
  4. GLEEVEC [Suspect]
     Indication: LEUKAEMIA
     Dosage: 300 MG, QD, ORAL
     Route: 048
     Dates: start: 20080103
  5. SEPTRA [Suspect]
     Dates: end: 20080113

REACTIONS (2)
  - HAEMOGLOBIN DECREASED [None]
  - DERMATITIS ALLERGIC [None]
